FAERS Safety Report 9338365 (Version 1)
Quarter: 2013Q2

REPORT INFORMATION
  Report Type: Spontaneous
  Country: US (occurrence: US)
  Receive Date: 20130610
  Receipt Date: 20130610
  Transmission Date: 20140414
  Serious: No
  Sender: FDA-Public Use
  Company Number: US-PFIZER INC-2013174150

PATIENT
  Age: 30 Year
  Sex: Female
  Weight: 53.52 kg

DRUGS (2)
  1. RELPAX [Suspect]
     Indication: MIGRAINE
     Dosage: 40 MG, AS NEEDED
     Route: 048
     Dates: start: 2012
  2. ZOMIG [Concomitant]
     Dosage: UNK

REACTIONS (1)
  - Drug ineffective [Unknown]
